FAERS Safety Report 9835833 (Version 1)
Quarter: 2014Q1

REPORT INFORMATION
  Report Type: Spontaneous
  Country: US (occurrence: US)
  Receive Date: 20140122
  Receipt Date: 20140122
  Transmission Date: 20141002
  Serious: No
  Sender: FDA-Public Use
  Company Number: US-GILEAD-2011-0044239

PATIENT
  Sex: Male

DRUGS (2)
  1. COMPLERA [Suspect]
     Indication: HIV INFECTION
     Dosage: UNK
     Dates: start: 201109
  2. ATRIPLA [Concomitant]
     Indication: HIV INFECTION

REACTIONS (4)
  - Gastric disorder [Unknown]
  - Decreased appetite [Unknown]
  - Vomiting [Unknown]
  - Insomnia [Unknown]
